FAERS Safety Report 8785254 (Version 1)
Quarter: 2012Q4

REPORT INFORMATION
  Report Type: 
  Country: US (occurrence: US)
  Receive Date: 20120914
  Receipt Date: 20120914
  Transmission Date: 20130627
  Serious: No
  Sender: FDA-Public Use
  Company Number: US-009507513-1208USA002454

PATIENT

DRUGS (5)
  1. VICTRELIS [Suspect]
     Dosage: 4 capsules TID every 7 to 9 hours with food for 28 days
     Route: 048
  2. PEGINTRON [Suspect]
     Dosage: Pegintron kit 120 RP (Redipen)
  3. REBETOL [Suspect]
     Route: 048
  4. MELOXICAM [Concomitant]
     Route: 048
  5. DIOVAN [Concomitant]
     Route: 048

REACTIONS (7)
  - Dizziness [Unknown]
  - Oropharyngeal pain [Unknown]
  - Lethargy [Unknown]
  - Influenza like illness [Unknown]
  - Weight decreased [Unknown]
  - Pollakiuria [Unknown]
  - Dyspnoea [Unknown]
